FAERS Safety Report 12574362 (Version 1)
Quarter: 2016Q3

REPORT INFORMATION
  Report Type: Spontaneous
  Country: US (occurrence: US)
  Receive Date: 20160720
  Receipt Date: 20160720
  Transmission Date: 20161109
  Serious: No
  Sender: FDA-Public Use
  Company Number: US-WATSON-2016-01189

PATIENT
  Age: 46 Year
  Sex: Female

DRUGS (1)
  1. NEXT CHOICE ONE DOSE [Suspect]
     Active Substance: LEVONORGESTREL
     Indication: PRODUCT USED FOR UNKNOWN INDICATION
     Dosage: UNK, SINGLE
     Route: 048
     Dates: start: 20160112, end: 20160112

REACTIONS (2)
  - Paraesthesia [Unknown]
  - Erythema [Unknown]

NARRATIVE: CASE EVENT DATE: 201601
